FAERS Safety Report 10175808 (Version 1)
Quarter: 2014Q2

REPORT INFORMATION
  Report Type: Report from Study
  Country: US (occurrence: US)
  Receive Date: 20140516
  Receipt Date: 20140516
  Transmission Date: 20141212
  Serious: Yes (Other)
  Sender: FDA-Public Use
  Company Number: US-009507513-1405USA008073

PATIENT
  Age: 49 Year
  Sex: Male
  Weight: 113.1 kg

DRUGS (7)
  1. TEMODAR [Suspect]
     Indication: GLIOBLASTOMA
     Dosage: UNK
     Route: 048
  2. MACITENTAN [Suspect]
     Indication: GLIOBLASTOMA
     Dosage: 150 MG, QD
     Route: 048
     Dates: start: 20140212, end: 20140411
  3. VIMPAT [Concomitant]
     Dosage: UNK
     Dates: start: 20140129
  4. HEXADROL TABLETS [Concomitant]
     Dosage: UNK
     Route: 048
     Dates: start: 20140129
  5. PROTONIX [Concomitant]
     Dosage: UNK
     Dates: start: 20140220
  6. LOVENOX [Concomitant]
     Dosage: UNK
     Dates: start: 20140220
  7. ADVIL [Concomitant]

REACTIONS (1)
  - Lymphocyte count decreased [Recovered/Resolved]
